FAERS Safety Report 9933509 (Version 2)
Quarter: 2014Q1

REPORT INFORMATION
  Report Type: Report from Study
  Country: US (occurrence: US)
  Receive Date: 20140228
  Receipt Date: 20140228
  Transmission Date: 20141002
  Serious: No
  Sender: FDA-Public Use
  Company Number: US-MYLANLABS-2013S1021931

PATIENT
  Age: 18 Year
  Sex: Male
  Weight: 114.76 kg

DRUGS (3)
  1. CLARAVIS [Suspect]
     Indication: ACNE
     Dates: start: 201302, end: 201303
  2. CLARAVIS [Suspect]
     Indication: ACNE
     Dates: start: 201303, end: 201304
  3. AMNESTEEM CAPSULES [Suspect]
     Indication: ACNE
     Dates: start: 201304, end: 201308

REACTIONS (2)
  - Alanine aminotransferase increased [Not Recovered/Not Resolved]
  - Blood triglycerides increased [Not Recovered/Not Resolved]
